FAERS Safety Report 25645074 (Version 2)
Quarter: 2025Q3

REPORT INFORMATION
  Report Type: Spontaneous
  Country: JP (occurrence: JP)
  Receive Date: 20250805
  Receipt Date: 20250808
  Transmission Date: 20251021
  Serious: Yes (Death, Other)
  Sender: ALEXION PHARMACEUTICALS
  Company Number: JP-ASTRAZENECA-240143712_064320_P_1

PATIENT

DRUGS (3)
  1. ANDEXXA [Suspect]
     Active Substance: ANDEXANET ALFA
     Indication: Haemorrhage intracranial
  2. ANDEXXA [Suspect]
     Active Substance: ANDEXANET ALFA
  3. ANDEXXA [Suspect]
     Active Substance: ANDEXANET ALFA

REACTIONS (1)
  - Death [Fatal]
